FAERS Safety Report 8202565-0 (Version None)
Quarter: 2012Q1

REPORT INFORMATION
  Report Type: 
  Country: None (occurrence: None)
  Receive Date: 20120312
  Receipt Date: 20120305
  Transmission Date: 20120608
  Serious: Yes (Other)
  Sender: FDA-Public Use
  Company Number: PHHY2012MY019376

PATIENT
  Age: 30 Year
  Sex: Female

DRUGS (1)
  1. STANDACILLIN [Suspect]
     Indication: PUERPERAL PYREXIA
     Dosage: 1 G, UNK
     Route: 042
     Dates: start: 20110413

REACTIONS (3)
  - ANAPHYLACTIC SHOCK [None]
  - ANGIOEDEMA [None]
  - RASH MACULO-PAPULAR [None]
